FAERS Safety Report 10453165 (Version 2)
Quarter: 2014Q4

REPORT INFORMATION
  Report Type: Spontaneous
  Country: FR (occurrence: FR)
  Receive Date: 20140915
  Receipt Date: 20141020
  Transmission Date: 20150528
  Serious: Yes (Life-Threatening, Hospitalization, Other)
  Sender: FDA-Public Use
  Company Number: FR-GLAXOSMITHKLINE-B1031679A

PATIENT
  Age: 55 Year
  Sex: Female

DRUGS (1)
  1. VOTRIENT [Suspect]
     Active Substance: PAZOPANIB HYDROCHLORIDE
     Indication: RENAL CANCER METASTATIC
     Dosage: 800 MG, U
     Route: 048
     Dates: start: 20140820, end: 20140824

REACTIONS (2)
  - Shock haemorrhagic [Not Recovered/Not Resolved]
  - Tumour necrosis [Not Recovered/Not Resolved]

NARRATIVE: CASE EVENT DATE: 20140824
